FAERS Safety Report 4626128-9 (Version None)
Quarter: 2005Q1

REPORT INFORMATION
  Report Type: 
  Country: None (occurrence: None)
  Receive Date: 20050330
  Receipt Date: 20050316
  Transmission Date: 20050727
  Serious: Yes (Life-Threatening, Hospitalization, Other)
  Sender: FDA-Public Use
  Company Number: US_0502113514

PATIENT
  Age: 1 Day
  Sex: Female
  Weight: 2 kg

DRUGS (2)
  1. HUMULIN L [Suspect]
     Dates: start: 19820101, end: 19830527
  2. PRENATAL VITAMINS [Concomitant]

REACTIONS (8)
  - ABDOMINAL PAIN [None]
  - BLOOD GLUCOSE DECREASED [None]
  - CAESAREAN SECTION [None]
  - CONVULSION NEONATAL [None]
  - DRUG EXPOSURE DURING PREGNANCY [None]
  - FOETAL DISTRESS SYNDROME [None]
  - NEONATAL DISORDER [None]
  - PREMATURE BABY [None]
